FAERS Safety Report 23643535 (Version 2)
Quarter: 2024Q1

REPORT INFORMATION
  Report Type: Report from Study
  Country: JP (occurrence: None)
  Receive Date: 20240318
  Receipt Date: 20240322
  Transmission Date: 20240410
  Serious: Yes (Other)
  Sender: FDA-Public Use
  Company Number: 2023A056308

PATIENT
  Age: 16 Year
  Sex: Female
  Weight: 50 kg

DRUGS (6)
  1. KOSELUGO [Suspect]
     Active Substance: SELUMETINIB
     Indication: Neurofibromatosis
     Dosage: GENERALLY DOSED ON AN EMPTY STOMACH
     Route: 048
     Dates: start: 20230130, end: 20230301
  2. KOSELUGO [Suspect]
     Active Substance: SELUMETINIB
     Indication: Neurofibromatosis
     Dosage: GENERALLY DOSED ON AN EMPTY STOMACH, NUMBER OF SEPARATE DOSAGES UNKNOWN
     Route: 048
     Dates: start: 20230301, end: 20230523
  3. KOSELUGO [Suspect]
     Active Substance: SELUMETINIB
     Indication: Neurofibromatosis
     Dosage: GENERALLY DOSED ON AN EMPTY STOMACH, NUMBER OF SEPARATE DOSAGES UNKNOW
     Route: 048
     Dates: start: 20230524, end: 20231114
  4. KOSELUGO [Suspect]
     Active Substance: SELUMETINIB
     Indication: Neurofibromatosis
     Dosage: GENERALLY DOSED ON AN EMPTY STOMACH, NUMBER OF SEPARATE DOSAGES UNKNOWN
     Route: 048
     Dates: start: 20240117
  5. BEPIO GEL [Concomitant]
  6. HIRUDOID LOTION [Concomitant]

REACTIONS (5)
  - Chalazion [Unknown]
  - Dermatitis acneiform [Recovering/Resolving]
  - Blood creatine phosphokinase increased [Recovered/Resolved]
  - Paronychia [Unknown]
  - Eczema [Not Recovered/Not Resolved]

NARRATIVE: CASE EVENT DATE: 20230228
